FAERS Safety Report 7183947-5 (Version None)
Quarter: 2010Q4

REPORT INFORMATION
  Report Type: 
  Country: None (occurrence: None)
  Receive Date: 20101222
  Receipt Date: 20101214
  Transmission Date: 20110411
  Serious: Yes (Death)
  Sender: FDA-Public Use
  Company Number: CA-ROCHE-748561

PATIENT
  Sex: Female

DRUGS (8)
  1. CAPECITABINE [Suspect]
     Indication: GASTROINTESTINAL CARCINOMA
     Route: 048
     Dates: end: 20101210
  2. DOCUSATE [Concomitant]
  3. DOMPERIDONE [Concomitant]
  4. OXYBUTYNIN [Concomitant]
  5. SENOKOT [Concomitant]
  6. ZOPICLONE [Concomitant]
     Dosage: DRUG NAME REPORTED AS XOPICLONE
  7. ESOMEPRAZOLE [Concomitant]
     Dosage: DRUG NAME REPORTED AS ESOMAPHRAZOLE
  8. HYDROMORPHONE HCL [Concomitant]
     Dosage: DRUG NAME REPORTED AS HYDROMORPHE

REACTIONS (1)
  - DEATH [None]
